FAERS Safety Report 21503822 (Version 1)
Quarter: 2022Q4

REPORT INFORMATION
  Report Type: Spontaneous
  Country: US (occurrence: US)
  Receive Date: 20221025
  Receipt Date: 20221025
  Transmission Date: 20230113
  Serious: No
  Sender: FDA-Public Use
  Company Number: US-PFIZER INC-202201246062

PATIENT
  Age: 72 Year
  Sex: Female
  Weight: 104.33 kg

DRUGS (18)
  1. INLYTA [Suspect]
     Active Substance: AXITINIB
     Indication: Renal cell carcinoma
     Dosage: 3 MG, 2X/DAY (3- 1MG TABLETS TWICE A DAY; 12 HOURS APART)
     Dates: start: 202210
  2. PAROXETINE [Concomitant]
     Active Substance: PAROXETINE
     Dosage: 10 MG, 1X/DAY (AT NIGHT)
  3. INDAPAMIDE [Concomitant]
     Active Substance: INDAPAMIDE
     Dosage: 2.5 MG, 1X/DAY (IN THE MORNING)
  4. LEVOTHYROXINE [Concomitant]
     Active Substance: LEVOTHYROXINE
     Dosage: 88 UG, 1X/DAY (1 TABLET EVERY MORNING ON EMPTY STOMACH)
  5. METFORMIN HYDROCHLORIDE [Concomitant]
     Active Substance: METFORMIN HYDROCHLORIDE
     Dosage: 1000 MG, 2X/DAY (1 TABLET 2 TIMES DAILY WITH MEALS)
  6. CRESTOR [Concomitant]
     Active Substance: ROSUVASTATIN CALCIUM
     Dosage: 20 MG, 1X/DAY (1 TABLET DAILY AT NIGHT)
  7. ACTOS [Concomitant]
     Active Substance: PIOGLITAZONE HYDROCHLORIDE
     Dosage: 30 MG, 1X/DAY (1 TABLET IN THE MORNING)
  8. FARXIGA [Concomitant]
     Active Substance: DAPAGLIFLOZIN PROPANEDIOL
     Dosage: 10 MG, 1X/DAY (1 TABLET IN THE MORNING)
  9. INTEGRA PLUS [Concomitant]
     Active Substance: ASCORBIC ACID\BIOTIN\CALCIUM PANTOTHENATE\FERROUS ASPARTO GLYCINATE\FERROUS FUMARATE\FOLIC ACID\NIAC
     Indication: Iron deficiency
     Dosage: UNK (TAKES ABOUT 4 HOURS AFTER SHE EATS BREAKFAST)
  10. VITAMIN B12 [Concomitant]
     Active Substance: CYANOCOBALAMIN
     Dosage: 2500 UG (SUBLINGUAL WITH MORNING MEDICATIONS)
     Route: 060
  11. VITAMIN D3 [Concomitant]
     Active Substance: CHOLECALCIFEROL
     Dosage: 5000 IU, DAILY (5000IU; 1 CAPSULE DAILY)
  12. ESTRADIOL [Concomitant]
     Active Substance: ESTRADIOL
     Dosage: 1 DF, DAILY (1 CAPSULE DAILY AT NIGHTTIME)
  13. ASPIRIN [Concomitant]
     Active Substance: ASPIRIN
     Dosage: 81 MG, 1X/DAY (81MG; 1 TABLET AT NIGHT)
  14. XYZAL [Concomitant]
     Active Substance: LEVOCETIRIZINE DIHYDROCHLORIDE
     Indication: Hypersensitivity
     Dosage: 1 DF, 1X/DAY (1 TABLET AT NIGHT SINCE THIS HAS ANTIHISTAMINES)
  15. TYLENOL [Concomitant]
     Active Substance: ACETAMINOPHEN
     Indication: Arthritis
     Dosage: UNK (2 IN THE MORNING)
  16. OSTEO BI-FLEX [CHONDROITIN SULFATE;GLUCOSAMINE HYDROCHLORIDE] [Concomitant]
     Indication: Arthralgia
     Dosage: 1 DF, 1X/DAY (1 PILL A DAY AND TOOK WITH LUNCH )
  17. OSTEO BI-FLEX [CHONDROITIN SULFATE;GLUCOSAMINE HYDROCHLORIDE] [Concomitant]
     Indication: Arthralgia
  18. OSTEO BI-FLEX [CHONDROITIN SULFATE;GLUCOSAMINE HYDROCHLORIDE] [Concomitant]
     Indication: Arthralgia

REACTIONS (6)
  - Eating disorder [Not Recovered/Not Resolved]
  - Glossodynia [Not Recovered/Not Resolved]
  - Swollen tongue [Not Recovered/Not Resolved]
  - Tongue discomfort [Not Recovered/Not Resolved]
  - Dysphonia [Unknown]
  - Fatigue [Unknown]

NARRATIVE: CASE EVENT DATE: 20221001
